FAERS Safety Report 9686109 (Version 1)
Quarter: 2013Q4

REPORT INFORMATION
  Report Type: Spontaneous
  Country: US (occurrence: US)
  Receive Date: 20131113
  Receipt Date: 20131113
  Transmission Date: 20140711
  Serious: No
  Sender: FDA-Public Use
  Company Number: US-TEVA-443935USA

PATIENT
  Age: 73 Year
  Sex: Female
  Weight: 84.44 kg

DRUGS (14)
  1. SPIRIVA [Concomitant]
     Indication: CHRONIC OBSTRUCTIVE PULMONARY DISEASE
  2. SPIRIVA [Concomitant]
     Indication: ASTHMA
  3. SINGULAIR [Concomitant]
     Indication: HYPERSENSITIVITY
     Dosage: PRN
  4. LEVOTHYROXINE [Concomitant]
     Indication: HYPOTHYROIDISM
  5. QVAR [Concomitant]
     Indication: CHRONIC OBSTRUCTIVE PULMONARY DISEASE
     Dosage: PRN
  6. QVAR [Concomitant]
     Indication: ASTHMA
  7. ALBUTEROL [Concomitant]
     Indication: CHRONIC OBSTRUCTIVE PULMONARY DISEASE
  8. ALBUTEROL [Concomitant]
     Indication: ASTHMA
  9. MAGNESIUM [Concomitant]
     Indication: SUPPLEMENTATION THERAPY
  10. OYSTER SHELL CALCIUM [Concomitant]
     Indication: SUPPLEMENTATION THERAPY
  11. AUGMENTIN [Concomitant]
     Indication: INFECTION
     Dosage: 1750 MILLIGRAM DAILY;
     Route: 048
  12. PROAIR HFA [Suspect]
     Indication: CHRONIC OBSTRUCTIVE PULMONARY DISEASE
     Route: 055
     Dates: start: 20131105, end: 20131107
  13. PROAIR HFA [Suspect]
     Indication: ASTHMA
  14. PROAIR HFA [Suspect]
     Indication: GASTROOESOPHAGEAL REFLUX DISEASE

REACTIONS (9)
  - Headache [Recovered/Resolved]
  - Malaise [Recovered/Resolved]
  - Fungal infection [Unknown]
  - Product taste abnormal [Unknown]
  - Inappropriate schedule of drug administration [Unknown]
  - Device misuse [Unknown]
  - Off label use [Recovered/Resolved]
  - Dyspnoea [Unknown]
  - Incorrect dose administered [Unknown]
